FAERS Safety Report 5353502-8 (Version None)
Quarter: 2007Q2

REPORT INFORMATION
  Report Type: 
  Country: None (occurrence: None)
  Receive Date: 20070608
  Receipt Date: 20070529
  Transmission Date: 20071010
  Serious: Yes (Other)
  Sender: FDA-Public Use
  Company Number: 2007BI004564

PATIENT
  Age: 30 Year
  Sex: Female

DRUGS (5)
  1. NATALIZUMAB (NATALIZUMAB) [Suspect]
     Indication: MULTIPLE SCLEROSIS
     Dosage: 300 MG; QM; IV
     Route: 042
     Dates: start: 20061205, end: 20070116
  2. FLUOXETINE [Concomitant]
  3. STARLIX [Concomitant]
  4. METFORMIN HCL [Concomitant]
  5. INSULIN [Concomitant]

REACTIONS (5)
  - BLOOD PRESSURE IMMEASURABLE [None]
  - CARDIOVASCULAR DISORDER [None]
  - NAUSEA [None]
  - PULSE ABSENT [None]
  - VOMITING [None]
